FAERS Safety Report 6178180-X (Version None)
Quarter: 2009Q2

REPORT INFORMATION
  Report Type: 
  Country: None (occurrence: None)
  Receive Date: 20090504
  Receipt Date: 20090424
  Transmission Date: 20091009
  Serious: Yes (Other)
  Sender: FDA-Public Use
  Company Number: PHHO2009US05374

PATIENT
  Sex: Male
  Weight: 80.2 kg

DRUGS (4)
  1. IMATINIB MESYLATE [Suspect]
     Indication: CHRONIC GRAFT VERSUS HOST DISEASE
     Dosage: 400 MG, QD
     Route: 048
     Dates: start: 20090112, end: 20090407
  2. IMATINIB MESYLATE [Suspect]
     Dosage: NO TREATMENT
     Dates: start: 20090408, end: 20090414
  3. IMATINIB MESYLATE [Suspect]
     Dosage: UNK
     Dates: start: 20090415
  4. PREDNISONE [Suspect]

REACTIONS (3)
  - FATIGUE [None]
  - RASH PAPULAR [None]
  - SQUAMOUS CELL CARCINOMA OF SKIN [None]
